FAERS Safety Report 14427952 (Version 2)
Quarter: 2018Q1

REPORT INFORMATION
  Report Type: Spontaneous
  Country: US (occurrence: US)
  Receive Date: 20180123
  Receipt Date: 20180212
  Transmission Date: 20180509
  Serious: Yes (Congenital Anomaly, Other)
  Sender: FDA-Public Use
  Company Number: US-SUNOVION-2018SUN000190

PATIENT
  Age: 0 Day
  Sex: Male

DRUGS (2)
  1. LATUDA [Suspect]
     Active Substance: LURASIDONE HYDROCHLORIDE
     Indication: PRODUCT USED FOR UNKNOWN INDICATION
     Dosage: UNK
     Route: 064
  2. DULOXETINE. [Concomitant]
     Active Substance: DULOXETINE
     Route: 064

REACTIONS (4)
  - Foetal exposure during pregnancy [Unknown]
  - Congenital neurological disorder [Unknown]
  - Dystonia [Unknown]
  - Developmental delay [Unknown]

NARRATIVE: CASE EVENT DATE: 20170404
